FAERS Safety Report 8779696 (Version 2)
Quarter: 2012Q4

REPORT INFORMATION
  Report Type: 
  Country: US (occurrence: US)
  Receive Date: 20120911
  Receipt Date: 20120926
  Transmission Date: 20130627
  Serious: Yes (Other)
  Sender: FDA-Public Use
  Company Number: US-009507513-1209USA002319

PATIENT
  Age: 60 Year
  Sex: Female

DRUGS (7)
  1. JANUMET XR [Suspect]
     Indication: DIABETES MELLITUS
     Dosage: 50mg/1000mg
     Route: 048
     Dates: start: 20120724, end: 20120821
  2. LOTREL [Concomitant]
  3. SIMVASTATIN TABLETS, USP [Concomitant]
  4. METOPROLOL [Concomitant]
  5. MAXIDE [Concomitant]
  6. NEXIUM [Concomitant]
  7. NOVOLOG MIX 70/30 [Concomitant]

REACTIONS (1)
  - Pancreatitis [Recovering/Resolving]
